FAERS Safety Report 6150766-8 (Version None)
Quarter: 2009Q2

REPORT INFORMATION
  Report Type: 
  Country: None (occurrence: None)
  Receive Date: 20090408
  Receipt Date: 20090402
  Transmission Date: 20091009
  Serious: Yes (Other)
  Sender: FDA-Public Use
  Company Number: FEI2009-0723

PATIENT
  Age: 27 Year
  Sex: Female
  Weight: 81.6475 kg

DRUGS (1)
  1. PARAGARD T 380A [Suspect]
     Indication: CONTRACEPTION
     Dosage: INTRA-UTERINE
     Route: 015
     Dates: start: 20071004, end: 20080902

REACTIONS (4)
  - HAEMATOMA [None]
  - INTRA-UTERINE DEATH [None]
  - PREGNANCY WITH CONTRACEPTIVE DEVICE [None]
  - SINGLE UMBILICAL ARTERY [None]
